FAERS Safety Report 9223361 (Version 11)
Quarter: 2015Q4

REPORT INFORMATION
  Report Type: Spontaneous
  Country: US (occurrence: US)
  Receive Date: 20130410
  Receipt Date: 20151028
  Transmission Date: 20160305
  Serious: No
  Sender: FDA-Public Use
  Company Number: US-009507513-1304USA002750

PATIENT
  Sex: Male
  Weight: 84.35 kg

DRUGS (4)
  1. FINASTERIDE. [Suspect]
     Active Substance: FINASTERIDE
     Indication: ANDROGENETIC ALOPECIA
     Dosage: 1 MG, UNKNOWN
     Route: 048
     Dates: start: 1999, end: 2007
  2. PROSCAR [Suspect]
     Active Substance: FINASTERIDE
     Indication: PROPHYLAXIS
     Dosage: 5 MG, UNKNOWN
     Route: 048
     Dates: start: 199805, end: 201109
  3. FINASTERIDE. [Suspect]
     Active Substance: FINASTERIDE
     Dosage: 5 MG, DAILY
     Route: 048
     Dates: start: 20150215, end: 20150611
  4. PROPECIA [Suspect]
     Active Substance: FINASTERIDE
     Indication: ANDROGENETIC ALOPECIA
     Dosage: 1 MG, DAILY
     Route: 048
     Dates: start: 1999, end: 2007

REACTIONS (25)
  - Anxiety [Not Recovered/Not Resolved]
  - Chest pain [Unknown]
  - Insomnia [Unknown]
  - Depression [Not Recovered/Not Resolved]
  - Hypogonadism [Not Recovered/Not Resolved]
  - Off label use [Unknown]
  - Gynaecomastia [Unknown]
  - Arthralgia [Unknown]
  - Weight increased [Unknown]
  - Tendon disorder [Unknown]
  - Libido decreased [Not Recovered/Not Resolved]
  - Overdose [Unknown]
  - Benign prostatic hyperplasia [Unknown]
  - Chest pain [Unknown]
  - Hypertension [Not Recovered/Not Resolved]
  - Haematocrit increased [Unknown]
  - Erectile dysfunction [Not Recovered/Not Resolved]
  - Hair transplant [Unknown]
  - Fatigue [Not Recovered/Not Resolved]
  - Dermatitis [Unknown]
  - Semen volume decreased [Not Recovered/Not Resolved]
  - Haemoglobin increased [Unknown]
  - Hair transplant [Unknown]
  - Presyncope [Unknown]
  - Ejaculation disorder [Not Recovered/Not Resolved]

NARRATIVE: CASE EVENT DATE: 199805
